FAERS Safety Report 24235627 (Version 1)
Quarter: 2024Q3

REPORT INFORMATION
  Report Type: Spontaneous
  Country: US (occurrence: US)
  Receive Date: 20240822
  Receipt Date: 20240822
  Transmission Date: 20241017
  Serious: No
  Sender: MANKIND PHARMA
  Company Number: US-MankindUS-000217

PATIENT
  Sex: Female

DRUGS (1)
  1. VARENICLINE TARTRATE [Suspect]
     Active Substance: VARENICLINE TARTRATE
     Indication: Smoking cessation therapy
     Dosage: STRENGTH: STARTING MONTH PACK FIRST 4 WEEKS 0.5 MG AND 1 MG
     Route: 048

REACTIONS (2)
  - Nightmare [Unknown]
  - Product use issue [Unknown]
